FAERS Safety Report 5471288-3 (Version None)
Quarter: 2007Q3

REPORT INFORMATION
  Report Type: 
  Country: None (occurrence: None)
  Receive Date: 20070928
  Receipt Date: 20070918
  Transmission Date: 20080115
  Serious: Yes (Other)
  Sender: FDA-Public Use
  Company Number: FR-SANOFI-SYNTHELABO-A02200702751

PATIENT
  Sex: Male

DRUGS (2)
  1. STABLON [Concomitant]
     Route: 048
     Dates: start: 20050101
  2. XATRAL [Suspect]
     Indication: DRUG USE FOR UNKNOWN INDICATION
     Route: 048
     Dates: start: 20070801

REACTIONS (4)
  - BALANCE DISORDER [None]
  - FATIGUE [None]
  - HEADACHE [None]
  - SUICIDAL IDEATION [None]
